FAERS Safety Report 5491814-8 (Version None)
Quarter: 2007Q4

REPORT INFORMATION
  Report Type: 
  Country: None (occurrence: None)
  Receive Date: 20071019
  Receipt Date: 20071019
  Transmission Date: 20080405
  Serious: Yes (Hospitalization)
  Sender: FDA-Public Use
  Company Number: None

PATIENT
  Age: 55 Year
  Sex: Male
  Weight: 138.3471 kg

DRUGS (1)
  1. WARFARIN SODIUM [Suspect]
     Dosage: 45MG QWEEK PO
     Route: 048
     Dates: start: 20070125

REACTIONS (4)
  - FALL [None]
  - HAEMATOCRIT DECREASED [None]
  - HAEMATOMA [None]
  - HAEMOGLOBIN DECREASED [None]
